FAERS Safety Report 8637916 (Version 4)
Quarter: 2013Q2

REPORT INFORMATION
  Report Type: Spontaneous
  Country: US (occurrence: US)
  Receive Date: 20120627
  Receipt Date: 20130520
  Transmission Date: 20140414
  Serious: Yes (Other)
  Sender: FDA-Public Use
  Company Number: US-JNJFOC-20120612396

PATIENT
  Age: 62 Year
  Sex: Male

DRUGS (3)
  1. STELARA [Suspect]
     Indication: PSORIASIS
     Route: 058
     Dates: start: 20100322
  2. CLOBETASOL [Concomitant]
     Route: 065
  3. TAZORAC [Concomitant]
     Indication: PSORIASIS
     Route: 065

REACTIONS (3)
  - Neoplasm malignant [Unknown]
  - Psoriasis [Recovered/Resolved]
  - Drug effect decreased [Unknown]
